FAERS Safety Report 5710630-2 (Version None)
Quarter: 2008Q2

REPORT INFORMATION
  Report Type: 
  Country: None (occurrence: None)
  Receive Date: 20080415
  Receipt Date: 20080408
  Transmission Date: 20081010
  Serious: Yes (Death)
  Sender: FDA-Public Use
  Company Number: 114-21880-08040509

PATIENT
  Age: 72 Year
  Sex: Female

DRUGS (4)
  1. REVLIMID [Suspect]
     Indication: DRUG USE FOR UNKNOWN INDICATION
     Dosage: 10 MG, ORAL
     Route: 048
  2. DEXAMETHASONE TAB [Concomitant]
  3. GLUCONAZOLE (FLUCONAZOLE) [Concomitant]
  4. COTRIMOX (BACTRIM) [Concomitant]

REACTIONS (1)
  - HEPATIC FAILURE [None]
